FAERS Safety Report 12551183 (Version 1)
Quarter: 2016Q3

REPORT INFORMATION
  Report Type: Spontaneous
  Country: US (occurrence: US)
  Receive Date: 20160713
  Receipt Date: 20160713
  Transmission Date: 20161109
  Serious: Yes (Hospitalization)
  Sender: FDA-Public Use
  Company Number: US-AUROBINDO-AUR-APL-2016-08831

PATIENT
  Age: 72 Year
  Sex: Female

DRUGS (1)
  1. PREDNISONE. [Suspect]
     Active Substance: PREDNISONE
     Indication: MUSCULAR WEAKNESS
     Dosage: 45 MG, DAILY
     Route: 065

REACTIONS (12)
  - Necrosis [Recovered/Resolved]
  - Pulmonary air leakage [Recovered/Resolved]
  - Breath sounds absent [Recovered/Resolved]
  - Empyema [Recovered/Resolved]
  - Pneumothorax [Recovered/Resolved]
  - Telangiectasia [Recovered/Resolved]
  - Gastrooesophageal reflux disease [Recovered/Resolved]
  - Pleurisy [Recovered/Resolved]
  - Herpes simplex [Recovered/Resolved]
  - Interstitial lung disease [Recovered/Resolved]
  - Myositis [Recovered/Resolved]
  - Hypoxia [Recovered/Resolved]
